FAERS Safety Report 7893367-3 (Version None)
Quarter: 2011Q4

REPORT INFORMATION
  Report Type: 
  Country: None (occurrence: None)
  Receive Date: 20111104
  Receipt Date: 20111026
  Transmission Date: 20120403
  Serious: Yes (Hospitalization)
  Sender: FDA-Public Use
  Company Number: JP-AMGEN-JPNCT2011049374

PATIENT
  Age: 68 Year
  Sex: Female
  Weight: 58 kg

DRUGS (2)
  1. PANITUMUMAB [Suspect]
     Indication: COLORECTAL CANCER
     Dosage: 360 MG, Q2WK
     Route: 041
     Dates: start: 20110317, end: 20110825
  2. ZOMETA [Concomitant]
     Indication: METASTASES TO PELVIS
     Route: 041
     Dates: start: 20100715, end: 20110825

REACTIONS (12)
  - ONYCHOCLASIS [None]
  - ANTIBIOTIC RESISTANT STAPHYLOCOCCUS TEST POSITIVE [None]
  - INFECTION SUSCEPTIBILITY INCREASED [None]
  - CANDIDA TEST POSITIVE [None]
  - COLORECTAL CANCER METASTATIC [None]
  - NEOPLASM PROGRESSION [None]
  - OEDEMA [None]
  - FUNGAL INFECTION [None]
  - CELLULITIS [None]
  - ACNE [None]
  - FLUSHING [None]
  - DRY SKIN [None]
